FAERS Safety Report 12888994 (Version 1)
Quarter: 2016Q4

REPORT INFORMATION
  Report Type: Spontaneous
  Country: US (occurrence: US)
  Receive Date: 20161027
  Receipt Date: 20161027
  Transmission Date: 20170207
  Serious: Yes (Death)
  Sender: FDA-Public Use
  Company Number: US-PFIZER INC-2016365730

PATIENT
  Age: 71 Year
  Sex: Female

DRUGS (10)
  1. LYRICA [Suspect]
     Active Substance: PREGABALIN
     Indication: NEUROPATHY PERIPHERAL
     Dosage: 100 MG, 3X/DAY
     Route: 048
  2. BUDESONIDE. [Concomitant]
     Active Substance: BUDESONIDE
     Indication: EMPHYSEMA
     Dosage: UNK UNK, 2X/DAY (0.5MG/2ML, 2 TIMES DAILV IN NEBULIZER)
     Route: 055
  3. POTASSIUM CL [Concomitant]
     Active Substance: POTASSIUM CHLORIDE
     Dosage: 10 MEQ, 2X/DAY
  4. PREDNISONE. [Concomitant]
     Active Substance: PREDNISONE
     Indication: EMPHYSEMA
     Dosage: 10 MG, DAILY
  5. IPRATROPIUM BROMIDE AND ALBUTEROL SULFATE [Concomitant]
     Active Substance: ALBUTEROL SULFATE\IPRATROPIUM BROMIDE
     Indication: EMPHYSEMA
     Dosage: UNK UNK, EVERY 4 HRS (IPRATROPIUM BROMIDE 0.5 MG AND ALBUTEROL SULFATE 3 MG)
     Route: 055
  6. SERTRALINE [Concomitant]
     Active Substance: SERTRALINE HYDROCHLORIDE
     Indication: DEPRESSION
     Dosage: 50 MG, DAILY
  7. LISINOPRIL. [Concomitant]
     Active Substance: LISINOPRIL
     Indication: BLOOD PRESSURE ABNORMAL
     Dosage: 40 MG, DAILY
  8. SERTRALINE [Concomitant]
     Active Substance: SERTRALINE HYDROCHLORIDE
     Dosage: 100 MG, DAILY
  9. ACETAMINOPHEN AND CODEINE [Concomitant]
     Active Substance: ACETAMINOPHEN\CODEINE PHOSPHATE
     Indication: NEUROPATHY PERIPHERAL
     Dosage: 1 DF, 3X/DAY (CODEINE:30 MG, PARACETAMOL: 300 MG)
  10. PRIMIDONE. [Concomitant]
     Active Substance: PRIMIDONE
     Indication: ESSENTIAL TREMOR
     Dosage: 150 MG, 2X/DAY (3 TABLETS IN THE MORNING AND 3 TABLETS IN THE EVENING)

REACTIONS (1)
  - Lung neoplasm malignant [Fatal]
